FAERS Safety Report 11588945 (Version 1)
Quarter: 2015Q4

REPORT INFORMATION
  Report Type: Spontaneous
  Country: US (occurrence: None)
  Receive Date: 20151001
  Receipt Date: 20151001
  Transmission Date: 20160304
  Serious: Yes (Hospitalization)
  Sender: FDA-Public Use
  Company Number: None

PATIENT
  Age: 66 Year
  Sex: Male
  Weight: 94.8 kg

DRUGS (13)
  1. HARVONI [Suspect]
     Active Substance: LEDIPASVIR\SOFOSBUVIR
     Indication: HEPATITIS C
     Dosage: 400/90?1X DAILY?ORAL
     Route: 048
     Dates: start: 20150306, end: 20150821
  2. OXYCONTIN [Concomitant]
     Active Substance: OXYCODONE HYDROCHLORIDE
  3. FOCALIN [Concomitant]
     Active Substance: DEXMETHYLPHENIDATE HYDROCHLORIDE
  4. ENULOSE [Concomitant]
     Active Substance: LACTULOSE
  5. XIFAXAN [Concomitant]
     Active Substance: RIFAXIMIN
  6. FLOVENT [Concomitant]
     Active Substance: FLUTICASONE PROPIONATE
  7. FLONASE [Concomitant]
     Active Substance: FLUTICASONE PROPIONATE
  8. EFFEXOR [Concomitant]
     Active Substance: VENLAFAXINE HYDROCHLORIDE
  9. LASIX [Concomitant]
     Active Substance: FUROSEMIDE
  10. CLARITIN [Concomitant]
     Active Substance: LORATADINE
  11. PRILOSEC [Concomitant]
     Active Substance: OMEPRAZOLE MAGNESIUM
  12. CYCLOBENZAPRINE [Concomitant]
     Active Substance: CYCLOBENZAPRINE
  13. TRAZAMINE [Concomitant]
     Active Substance: CHOLINE\TRAZODONE HYDROCHLORIDE

REACTIONS (1)
  - Cholecystitis [None]

NARRATIVE: CASE EVENT DATE: 20150807
